FAERS Safety Report 23291934 (Version 1)
Quarter: 2023Q4

REPORT INFORMATION
  Report Type: Spontaneous
  Country: BR (occurrence: BR)
  Receive Date: 20231213
  Receipt Date: 20231213
  Transmission Date: 20240110
  Serious: Yes (Hospitalization, Other)
  Sender: FDA-Public Use
  Company Number: BR-CHEPLA-2023015662

PATIENT
  Sex: Female
  Weight: 69 kg

DRUGS (6)
  1. CLONAZEPAM [Suspect]
     Active Substance: CLONAZEPAM
     Indication: Anxiolytic therapy
     Dosage: 1 TO 1/2,HALF A TABLET IN THE AFTERNOON AND 1 TABLET IN THE EVENING
     Route: 048
     Dates: start: 1997
  2. BROMAZEPAM [Suspect]
     Active Substance: BROMAZEPAM
     Indication: Anxiolytic therapy
     Route: 048
  3. Daflon [Concomitant]
     Indication: Thrombophlebitis
     Dosage: STRENGTH:500 MG?DAILY DOSE: 1 DOSAGE FORM
     Route: 048
  4. Daflon [Concomitant]
     Indication: Cardiovascular disorder
     Dosage: STRENGTH:500 MG?DAILY DOSE: 1 DOSAGE FORM
     Route: 048
  5. ASPIRIN\DIHYDROXYALUMINUM AMINOACETATE ANHYDROUS\MAGNESIUM CARBONATE [Concomitant]
     Active Substance: ASPIRIN\DIHYDROXYALUMINUM AMINOACETATE ANHYDROUS\MAGNESIUM CARBONATE
     Indication: Anticoagulant therapy
     Dosage: DAILY DOSE: 1 DOSAGE FORM
     Route: 048
     Dates: start: 1997
  6. AMARYL [Concomitant]
     Active Substance: GLIMEPIRIDE
     Indication: Diabetes mellitus
     Dosage: DAILY DOSE: 2 DOSAGE FORM
     Route: 048
     Dates: start: 1997

REACTIONS (9)
  - Drug dependence [Recovered/Resolved]
  - Breast cyst [Recovered/Resolved]
  - Breast discharge [Recovered/Resolved]
  - Sluggishness [Recovered/Resolved]
  - Agitation [Recovered/Resolved]
  - Insomnia [Recovered/Resolved]
  - Depression [Unknown]
  - Memory impairment [Unknown]
  - Fear [Unknown]

NARRATIVE: CASE EVENT DATE: 20200101
